FAERS Safety Report 4288783-5 (Version None)
Quarter: 2004Q1

REPORT INFORMATION
  Report Type: 
  Country: None (occurrence: None)
  Receive Date: 20040128
  Receipt Date: 20040109
  Transmission Date: 20041129
  Serious: Yes (Death)
  Sender: FDA-Public Use
  Company Number: 234471

PATIENT
  Age: 33 Year
  Sex: Female
  Weight: 55 kg

DRUGS (10)
  1. NIASTASE (EPTACOG ALFA (ACTIVATED) )POWDER FOR INJECTION [Suspect]
     Indication: HELLP SYNDROME
     Dosage: 2.4 MG + 1.2 MG INTRAVENOUS
     Route: 042
     Dates: start: 20031202, end: 20031202
  2. NIASTASE(EPTACOG ALFA (ACTIVATED)) POWEDER FOR INJECTION [Suspect]
     Dosage: 2.4 MG + 1.2 MG INTRAVENOUS
     Route: 042
     Dates: start: 20031202, end: 20031202
  3. NIASTASE(EPTACOG ALFA (ACTIVATED)) POWEDER FOR INJECTION [Suspect]
     Dates: start: 20031202, end: 20031202
  4. NIASTASE(EPTACOG ALFA (ACTIVATED)) POWEDER FOR INJECTION [Suspect]
     Dates: start: 20031202, end: 20031202
  5. TRANEXAMIC ACID (TRANEXAMIC ACID) [Concomitant]
  6. FRAGMIN [Concomitant]
  7. RED BLOOD CELLS [Concomitant]
  8. PLATELETS [Concomitant]
  9. HEMABATE (CARBOPROST TROMETAMOL) [Concomitant]
  10. SYNTOCINON [Concomitant]

REACTIONS (8)
  - ACUTE MYOCARDIAL INFARCTION [None]
  - ARTERIAL THROMBOSIS [None]
  - CARDIAC ARREST [None]
  - DYSPNOEA [None]
  - MYOCARDIAL RUPTURE [None]
  - OEDEMA PERIPHERAL [None]
  - SEPSIS [None]
  - TRANSFUSION REACTION [None]
